FAERS Safety Report 25939497 (Version 1)
Quarter: 2025Q4

REPORT INFORMATION
  Report Type: Spontaneous
  Country: US (occurrence: US)
  Receive Date: 20251020
  Receipt Date: 20251020
  Transmission Date: 20260119
  Serious: No
  Sender: LEO PHARM
  Company Number: US-LEO Pharma-383564

PATIENT
  Age: 31 Year
  Sex: Female

DRUGS (1)
  1. ADBRY [Suspect]
     Active Substance: TRALOKINUMAB-LDRM
     Indication: Dermatitis atopic
     Dosage: INJECT 2 PENS UNDER THE SKIN ON DAY 1,?THEN START MAINTENANCE DOSING AS DIRECTED ON DAY 15; TREATMEN
     Route: 058
     Dates: start: 202509

REACTIONS (6)
  - Skin wound [Not Recovered/Not Resolved]
  - Chest discomfort [Unknown]
  - Dyspnoea [Unknown]
  - Wheezing [Unknown]
  - Rash [Unknown]
  - Skin wound [Recovered/Resolved]
